FAERS Safety Report 7002009-0 (Version None)
Quarter: 2010Q3

REPORT INFORMATION
  Report Type: 
  Country: None (occurrence: None)
  Receive Date: 20100920
  Receipt Date: 20100908
  Transmission Date: 20110219
  Serious: Yes (Other)
  Sender: FDA-Public Use
  Company Number: B0675160A

PATIENT
  Age: 13 Year
  Sex: Female

DRUGS (2)
  1. ACICLOVIR [Suspect]
     Route: 065
  2. CEFRADINE [Suspect]
     Route: 065

REACTIONS (8)
  - ALANINE AMINOTRANSFERASE INCREASED [None]
  - BLOOD ALKALINE PHOSPHATASE INCREASED [None]
  - BLOOD BILIRUBIN INCREASED [None]
  - GAMMA-GLUTAMYLTRANSFERASE INCREASED [None]
  - HEPATIC NECROSIS [None]
  - HEPATITIS [None]
  - LIVER DISORDER [None]
  - LIVER INJURY [None]
